FAERS Safety Report 11255960 (Version 6)
Quarter: 2015Q3

REPORT INFORMATION
  Report Type: Spontaneous
  Country: JP (occurrence: JP)
  Receive Date: 20150709
  Receipt Date: 20150826
  Transmission Date: 20151125
  Serious: Yes (Hospitalization, Other)
  Sender: FDA-Public Use
  Company Number: PHJP2015JP011388

PATIENT
  Age: 43 Year
  Sex: Female

DRUGS (9)
  1. NEORAL [Suspect]
     Active Substance: CYCLOSPORINE
     Indication: ANTI-NEUTROPHIL CYTOPLASMIC ANTIBODY POSITIVE VASCULITIS
  2. NEORAL [Suspect]
     Active Substance: CYCLOSPORINE
     Indication: POLYARTERITIS NODOSA
     Dosage: 100 MG, UNK
     Route: 048
     Dates: start: 20140115, end: 20150118
  3. PREDNIN [Concomitant]
     Active Substance: PREDNISOLONE SODIUM PHOSPHATE
     Indication: ANTINEUTROPHIL CYTOPLASMIC ANTIBODY POSITIVE
     Dosage: 5 MG, QOD
     Route: 048
  4. PREDNIN [Concomitant]
     Active Substance: PREDNISOLONE SODIUM PHOSPHATE
     Dosage: 12 MG, UNK
     Route: 048
  5. PREDNIN [Concomitant]
     Active Substance: PREDNISOLONE SODIUM PHOSPHATE
     Indication: INTERSTITIAL LUNG DISEASE
     Dosage: 7.5 MG, QOD
     Route: 048
  6. TIENAM [Concomitant]
     Active Substance: CILASTATIN SODIUM\IMIPENEM
     Indication: PRODUCT USED FOR UNKNOWN INDICATION
     Route: 065
  7. PREDNIN [Concomitant]
     Active Substance: PREDNISOLONE SODIUM PHOSPHATE
     Dosage: 20 MG, UNK
     Route: 048
  8. METHYLPREDNISOLONE. [Concomitant]
     Active Substance: METHYLPREDNISOLONE
     Indication: ANTINEUTROPHIL CYTOPLASMIC ANTIBODY INCREASED
     Route: 065
  9. VANCOMYCIN [Concomitant]
     Active Substance: VANCOMYCIN
     Indication: PRODUCT USED FOR UNKNOWN INDICATION
     Route: 065

REACTIONS (7)
  - Pleural effusion [Unknown]
  - Opportunistic infection [Recovered/Resolved]
  - Bacterial infection [Recovered/Resolved]
  - Blood creatinine increased [Recovered/Resolved]
  - Sepsis [Unknown]
  - Pulmonary alveolar haemorrhage [Recovered/Resolved]
  - Off label use [Unknown]

NARRATIVE: CASE EVENT DATE: 20140117
